FAERS Safety Report 19471630 (Version 2)
Quarter: 2021Q4

REPORT INFORMATION
  Report Type: Spontaneous
  Country: BR (occurrence: BR)
  Receive Date: 20210628
  Receipt Date: 20211219
  Transmission Date: 20220303
  Serious: Yes (Other)
  Sender: FDA-Public Use
  Company Number: BR-JNJFOC-20210650816

PATIENT
  Age: 33 Year
  Sex: Female

DRUGS (1)
  1. STELARA [Suspect]
     Active Substance: USTEKINUMAB
     Indication: Crohn^s disease
     Route: 058

REACTIONS (3)
  - Colon neoplasm [Unknown]
  - Off label use [Unknown]
  - Inappropriate schedule of product administration [Unknown]
